FAERS Safety Report 23109783 (Version 2)
Quarter: 2023Q4

REPORT INFORMATION
  Report Type: Spontaneous
  Country: US (occurrence: US)
  Receive Date: 20231026
  Receipt Date: 20231106
  Transmission Date: 20240109
  Serious: Yes (Hospitalization)
  Sender: FDA-Public Use
  Company Number: US-TEVA-2023-US-2937312

PATIENT
  Sex: Male

DRUGS (19)
  1. METHYLPREDNISOLONE [Suspect]
     Active Substance: METHYLPREDNISOLONE
     Indication: Immunosuppressant drug therapy
     Dosage: 500MG
     Route: 042
  2. PREDNISONE [Suspect]
     Active Substance: PREDNISONE
     Indication: Systemic lupus erythematosus
     Dosage: 5 MILLIGRAM DAILY;
     Route: 065
  3. MYCOPHENOLIC ACID [Suspect]
     Active Substance: MYCOPHENOLIC ACID
     Indication: Immunosuppressant drug therapy
     Dosage: 1080 MILLIGRAM DAILY; FOR 1 MONTH
     Route: 065
  4. MYCOPHENOLIC ACID [Suspect]
     Active Substance: MYCOPHENOLIC ACID
     Indication: Immunosuppressant drug therapy
     Dosage: 720 MILLIGRAM DAILY;
     Route: 065
  5. CYCLOPHOSPHAMIDE [Suspect]
     Active Substance: CYCLOPHOSPHAMIDE
     Indication: Lupus nephritis
     Dosage: 1.0G/M2 ADJUSTED PER RENAL FUNCTION AND BLOOD COUNTS IN SEVEN MONTHLY DOSES
     Route: 065
  6. RITUXIMAB [Suspect]
     Active Substance: RITUXIMAB
     Indication: Lupus nephritis
     Dosage: FIVE DOSES 375 MG/M2
     Route: 065
  7. TACROLIMUS [Suspect]
     Active Substance: TACROLIMUS
     Indication: Lupus nephritis
     Dosage: WITH A THERAPEUTIC TARGET OF 5-8 NG/ ML
     Route: 065
  8. TACROLIMUS [Suspect]
     Active Substance: TACROLIMUS
     Indication: Immunosuppressant drug therapy
     Dosage: TO A GOAL OF 8-10 NG/ ML FOR THE FIRST 3 MONTHS AFTER TRANSPLANTATION
     Route: 065
  9. THYMOCYTE IMMUNE GLOBULIN NOS [Suspect]
     Active Substance: THYMOCYTE IMMUNE GLOBULIN NOS
     Indication: Immunosuppressant drug therapy
     Dosage: 1.5 MG/KG DAILY; ON DAY 0, 1, 2, AND 3
     Route: 065
  10. Immunoglobulin [Concomitant]
     Indication: Lupus nephritis
     Route: 042
  11. Pfizer-BioNTech COVID-19 vaccination [Concomitant]
     Indication: Immunisation
     Dosage: 2 DOSES
     Route: 065
  12. SULFAMETHOXAZOLE\TRIMETHOPRIM [Concomitant]
     Active Substance: SULFAMETHOXAZOLE\TRIMETHOPRIM
     Indication: Infection prophylaxis
     Dosage: THREE TIMES A WEEK
     Route: 065
  13. NYSTATIN [Concomitant]
     Active Substance: NYSTATIN
     Indication: Infection prophylaxis
     Route: 048
  14. VALGANCICLOVIR [Concomitant]
     Active Substance: VALGANCICLOVIR
     Indication: Infection prophylaxis
     Dosage: 450 MILLIGRAM DAILY;
     Route: 048
  15. VALGANCICLOVIR [Concomitant]
     Active Substance: VALGANCICLOVIR
     Dosage: 900 MILLIGRAM DAILY;
     Route: 048
  16. LISINOPRIL [Concomitant]
     Active Substance: LISINOPRIL
     Indication: Hypertension
     Route: 065
  17. NICARDIPINE [Concomitant]
     Active Substance: NICARDIPINE
     Indication: Hypertension
     Route: 065
  18. LABETALOL [Concomitant]
     Active Substance: LABETALOL\LABETALOL HYDROCHLORIDE
     Indication: Hypertension
     Route: 065
  19. AMLODIPINE [Concomitant]
     Active Substance: AMLODIPINE BESYLATE
     Indication: Hypertension
     Route: 065

REACTIONS (2)
  - Cytomegalovirus infection [Recovering/Resolving]
  - Focal segmental glomerulosclerosis [Recovering/Resolving]
